FAERS Safety Report 18679339 (Version 2)
Quarter: 2021Q1

REPORT INFORMATION
  Report Type: Spontaneous
  Country: PK (occurrence: PK)
  Receive Date: 20201229
  Receipt Date: 20210106
  Transmission Date: 20210419
  Serious: Yes (Other)
  Sender: FDA-Public Use
  Company Number: PK-NOVOPROD-777039

PATIENT
  Age: 75 Year
  Sex: Male
  Weight: 65 kg

DRUGS (1)
  1. NOVOMIX 30 FLEXPEN [Suspect]
     Active Substance: INSULIN ASPART
     Indication: TYPE 2 DIABETES MELLITUS
     Dosage: 64 IU, QD (28 +  36 UNITS)
     Route: 058
     Dates: start: 20191201

REACTIONS (1)
  - Pancreatitis chronic [Not Recovered/Not Resolved]

NARRATIVE: CASE EVENT DATE: 202004
